FAERS Safety Report 21284935 (Version 1)
Quarter: 2022Q3

REPORT INFORMATION
  Report Type: Spontaneous
  Country: JP (occurrence: JP)
  Receive Date: 20220902
  Receipt Date: 20220902
  Transmission Date: 20221027
  Serious: Yes (Life-Threatening, Other)
  Sender: FDA-Public Use
  Company Number: JP-NOVARTISPH-NVSJ2022JP096531

PATIENT

DRUGS (1)
  1. KYMRIAH [Suspect]
     Active Substance: TISAGENLECLEUCEL
     Indication: Product used for unknown indication
     Dosage: UNK
     Route: 041

REACTIONS (5)
  - Brain oedema [Unknown]
  - Immune effector cell-associated neurotoxicity syndrome [Unknown]
  - Generalised tonic-clonic seizure [Unknown]
  - Status epilepticus [Unknown]
  - Somnolence [Unknown]
